FAERS Safety Report 13544041 (Version 1)
Quarter: 2017Q2

REPORT INFORMATION
  Report Type: Spontaneous
  Country: US (occurrence: US)
  Receive Date: 20170515
  Receipt Date: 20170515
  Transmission Date: 20170830
  Serious: No
  Sender: FDA-Public Use
  Company Number: US-ASTRAZENECA-2017SE48475

PATIENT
  Age: 63 Year
  Sex: Female
  Weight: 70.3 kg

DRUGS (7)
  1. VITAMIN D [Concomitant]
     Active Substance: CHOLECALCIFEROL
     Indication: FULL BLOOD COUNT DECREASED
     Dosage: 50000, DAILY
     Dates: start: 2013
  2. CRESTOR [Suspect]
     Active Substance: ROSUVASTATIN CALCIUM
     Indication: BLOOD CHOLESTEROL ABNORMAL
     Route: 048
     Dates: start: 2012
  3. VITAMINS NOS [Concomitant]
     Active Substance: VITAMINS
  4. OMEPRAZOLE. [Suspect]
     Active Substance: OMEPRAZOLE
     Indication: GASTROOESOPHAGEAL REFLUX DISEASE
     Dosage: ON AND OFF FOR 2 WEEKS AT A TIME 3-4 TIMES A YEAR
     Route: 048
     Dates: start: 1993, end: 2016
  5. PEPCID [Concomitant]
     Active Substance: FAMOTIDINE
     Indication: GASTROOESOPHAGEAL REFLUX DISEASE
     Dates: start: 2016
  6. FISH OIL [Concomitant]
     Active Substance: FISH OIL
  7. ZYRTEC [Concomitant]
     Active Substance: CETIRIZINE HYDROCHLORIDE
     Indication: HYPERSENSITIVITY

REACTIONS (11)
  - Stress [Recovered/Resolved]
  - Restlessness [Recovered/Resolved]
  - Osteopenia [Unknown]
  - Cataract [Unknown]
  - Renal atrophy [Unknown]
  - Intentional product misuse [Unknown]
  - Frustration tolerance decreased [Recovered/Resolved]
  - Body height decreased [Unknown]
  - Visual impairment [Unknown]
  - Blood pressure abnormal [Unknown]
  - Vitamin D decreased [Unknown]

NARRATIVE: CASE EVENT DATE: 2007
